FAERS Safety Report 6250719-5 (Version None)
Quarter: 2009Q2

REPORT INFORMATION
  Report Type: 
  Country: None (occurrence: None)
  Receive Date: 20090630
  Receipt Date: 20080811
  Transmission Date: 20091009
  Serious: No
  Sender: FDA-Public Use
  Company Number: US-ABBOTT-08P-163-0470094-00

PATIENT
  Sex: Female

DRUGS (5)
  1. ZEMPLAR [Suspect]
     Indication: HYPERPARATHYROIDISM
     Dates: start: 20080604
  2. ZEMPLAR [Suspect]
     Indication: BLOOD PHOSPHORUS INCREASED
  3. IMMUNE GLOBULIN NOS [Suspect]
     Indication: DRUG USE FOR UNKNOWN INDICATION
     Dates: end: 20080701
  4. OSCAL [Concomitant]
     Indication: DRUG USE FOR UNKNOWN INDICATION
     Dates: start: 20080604
  5. METOPROLOL TARTRATE [Concomitant]
     Indication: BLOOD PRESSURE
     Route: 048

REACTIONS (1)
  - HYPERTENSION [None]
